FAERS Safety Report 9552593 (Version 1)
Quarter: 2013Q3

REPORT INFORMATION
  Report Type: Spontaneous
  Country: US (occurrence: None)
  Receive Date: 20130924
  Receipt Date: 20130924
  Transmission Date: 20140515
  Serious: Yes (Hospitalization)
  Sender: FDA-Public Use
  Company Number: None

PATIENT
  Age: 56 Year
  Sex: Female
  Weight: 100.5 kg

DRUGS (16)
  1. XARELTO [Suspect]
     Indication: ATRIAL FIBRILLATION
     Route: 048
     Dates: start: 20130607
  2. AMIODARONE [Concomitant]
  3. METOPROLOLER [Concomitant]
  4. LISINOPRIL [Concomitant]
  5. KEPPRA [Concomitant]
  6. SIMVASTATIN [Concomitant]
  7. FOLIC ACID [Concomitant]
  8. MVI [Concomitant]
  9. VITAMIN B COMPLEX [Concomitant]
  10. FLEXERIL [Concomitant]
  11. MC CONTIN [Concomitant]
  12. PERCOCET [Concomitant]
  13. DOCUSATE CA [Concomitant]
  14. FUROSEMIDE [Concomitant]
  15. AMBIEN [Concomitant]
  16. ATIVAN [Concomitant]

REACTIONS (1)
  - Haematoma [None]
